FAERS Safety Report 9839040 (Version 1)
Quarter: 2014Q1

REPORT INFORMATION
  Report Type: Not Available
  Country: CH (occurrence: CH)
  Receive Date: 20140123
  Receipt Date: 20140123
  Transmission Date: 20141002
  Serious: Yes (Death)
  Sender: FDA-Public Use
  Company Number: CH-NAPPMUNDI-DEU-2014-0013457

PATIENT
  Age: 18 Year
  Sex: Male

DRUGS (6)
  1. MST [Suspect]
     Indication: PRODUCT USED FOR UNKNOWN INDICATION
     Dosage: 50 MG, DAILY
     Route: 048
     Dates: start: 201310
  2. NEXAVAR [Suspect]
     Indication: HEPATOCELLULAR CARCINOMA
     Dosage: 200 MG, BID
     Route: 048
     Dates: start: 20131018, end: 20131023
  3. PANTOZOL /01263204/ [Suspect]
     Indication: PRODUCT USED FOR UNKNOWN INDICATION
     Dosage: 40 MG, DAILY
     Route: 048
     Dates: start: 201310
  4. PRIMPERAN [Suspect]
     Indication: PRODUCT USED FOR UNKNOWN INDICATION
     Dosage: 10 MG, DAILY
     Route: 048
     Dates: start: 201310
  5. ZOFRAN /00955301/ [Suspect]
     Indication: PRODUCT USED FOR UNKNOWN INDICATION
     Dosage: 4 MG, DAILY
     Route: 048
     Dates: start: 201310
  6. MOVICOL /01625101/ [Suspect]
     Indication: PRODUCT USED FOR UNKNOWN INDICATION
     Dosage: 1 DF, DAILY
     Route: 048
     Dates: start: 201310

REACTIONS (3)
  - Hepatocellular injury [Fatal]
  - Hepatic failure [Fatal]
  - Renal failure acute [Fatal]
